FAERS Safety Report 4325878-1 (Version None)
Quarter: 2004Q1

REPORT INFORMATION
  Report Type: 
  Country: None (occurrence: None)
  Receive Date: 20040329
  Receipt Date: 20010618
  Transmission Date: 20041129
  Serious: Yes (Life-Threatening, Hospitalization, Disabling, Other)
  Sender: FDA-Public Use
  Company Number: US-MERCK-01061634

PATIENT
  Age: 69 Year
  Sex: Female

DRUGS (11)
  1. LORTAB [Concomitant]
     Route: 048
  2. FOSAMAX [Suspect]
     Indication: OSTEOPOROSIS
     Route: 048
     Dates: end: 20020716
  3. NORVASC [Concomitant]
     Route: 048
  4. PLAVIX [Suspect]
     Route: 065
  5. INSULIN [Concomitant]
     Route: 065
  6. SYNTHROID [Concomitant]
     Route: 048
  7. ROBAXIN [Concomitant]
     Route: 065
  8. VIOXX [Suspect]
     Indication: INFLAMMATION
     Route: 048
     Dates: start: 20010116
  9. SEPTRA [Concomitant]
     Indication: INFLAMMATION
     Route: 048
     Dates: start: 20010401
  10. SEPTRA [Concomitant]
     Indication: ROTATOR CUFF REPAIR
     Route: 048
     Dates: start: 20010401
  11. ZANAFLEX [Concomitant]
     Route: 065
     Dates: start: 20010116

REACTIONS (71)
  - ABDOMINAL DISTENSION [None]
  - ABDOMINAL PAIN [None]
  - ABDOMINAL PAIN UPPER [None]
  - ADVERSE EVENT [None]
  - ANGINA UNSTABLE [None]
  - ANOREXIA [None]
  - ANXIETY [None]
  - ARRHYTHMIA [None]
  - ARTHRALGIA [None]
  - ARTHROPATHY [None]
  - ASTHENIA [None]
  - BLOOD GLUCOSE INCREASED [None]
  - BLOOD PRESSURE DECREASED [None]
  - BLOOD PRESSURE INCREASED [None]
  - BLOODY DISCHARGE [None]
  - CARDIAC PROCEDURE COMPLICATION [None]
  - CEREBROVASCULAR ACCIDENT [None]
  - CHILLS [None]
  - CHOLECYSTITIS CHRONIC [None]
  - CHOLELITHIASIS [None]
  - CHOLELITHIASIS OBSTRUCTIVE [None]
  - COLONIC POLYP [None]
  - CONTUSION [None]
  - CORONARY ARTERY ATHEROSCLEROSIS [None]
  - CORONARY ARTERY STENOSIS [None]
  - DEPRESSED MOOD [None]
  - DIABETES MELLITUS INADEQUATE CONTROL [None]
  - DIARRHOEA [None]
  - DYSPEPSIA [None]
  - DYSPNOEA EXERTIONAL [None]
  - EXOSTOSIS [None]
  - EYE DISORDER [None]
  - EYE REDNESS [None]
  - FUNGAL INFECTION [None]
  - GASTRIC HAEMORRHAGE [None]
  - GASTRITIS [None]
  - GASTROOESOPHAGEAL REFLUX DISEASE [None]
  - GINGIVAL DISORDER [None]
  - HAEMATOMA [None]
  - HYPERTENSIVE HEART DISEASE [None]
  - INSOMNIA [None]
  - INTERVERTEBRAL DISC PROTRUSION [None]
  - INTESTINAL FUNCTIONAL DISORDER [None]
  - JOINT SWELLING [None]
  - MUSCLE SPASMS [None]
  - MYOCARDIAL INFARCTION [None]
  - MYOCARDIAL ISCHAEMIA [None]
  - NAUSEA [None]
  - NIGHT SWEATS [None]
  - OEDEMA PERIPHERAL [None]
  - OSTEOPENIA [None]
  - PAIN [None]
  - PAIN IN EXTREMITY [None]
  - PALPITATIONS [None]
  - PERIPHERAL VASCULAR DISORDER [None]
  - PNEUMONIA [None]
  - POSTINFARCTION ANGINA [None]
  - PROCEDURAL COMPLICATION [None]
  - RENAL DISORDER [None]
  - RETROPERITONEAL HAEMATOMA [None]
  - RHEUMATOID ARTHRITIS [None]
  - SUPRAVENTRICULAR TACHYCARDIA [None]
  - THROMBOSIS [None]
  - TRANSIENT ISCHAEMIC ATTACK [None]
  - TREMOR [None]
  - URINARY TRACT INFECTION [None]
  - VAGINAL ERYTHEMA [None]
  - VENTRICULAR TACHYCARDIA [None]
  - VERTIGO [None]
  - VOMITING [None]
  - WEIGHT DECREASED [None]
